FAERS Safety Report 8117149-2 (Version None)
Quarter: 2012Q1

REPORT INFORMATION
  Report Type: 
  Country: None (occurrence: None)
  Receive Date: 20120206
  Receipt Date: 20120202
  Transmission Date: 20120608
  Serious: No
  Sender: FDA-Public Use
  Company Number: US-BAYER-2012-011684

PATIENT
  Sex: Male

DRUGS (7)
  1. ALEVE (CAPLET) [Suspect]
     Indication: MIGRAINE
     Dosage: 3 DF, UNK
     Route: 048
  2. IBUPROFEN [Suspect]
     Indication: MIGRAINE
     Dosage: 2 DF, UNK
     Dates: start: 20120201
  3. TORADOL [Concomitant]
     Indication: MIGRAINE
     Dosage: 3 ML, UNK
  4. MIGRAINE PILL [Concomitant]
     Indication: MIGRAINE
  5. ACETAMINOPHEN [Concomitant]
     Indication: MIGRAINE
     Dosage: 1 DF, UNK
     Dates: start: 20120201
  6. EXCEDRIN MIGRAINE CAPLETS [Concomitant]
     Indication: MIGRAINE
     Dosage: UNK
     Dates: start: 20120201
  7. MAXALT [Concomitant]
     Indication: MIGRAINE
     Dosage: UNK
     Dates: start: 20120201

REACTIONS (3)
  - MIGRAINE [None]
  - EYE PAIN [None]
  - FEELING ABNORMAL [None]
